FAERS Safety Report 6841865-3 (Version None)
Quarter: 2010Q3

REPORT INFORMATION
  Report Type: 
  Country: None (occurrence: None)
  Receive Date: 20100714
  Receipt Date: 20070716
  Transmission Date: 20110219
  Serious: No
  Sender: FDA-Public Use
  Company Number: US-PFIZER INC-2007059345

PATIENT
  Sex: Male
  Weight: 108.9 kg

DRUGS (8)
  1. CHANTIX [Suspect]
     Indication: SMOKING CESSATION THERAPY
     Dates: start: 20070601, end: 20070701
  2. CARDIZEM [Concomitant]
  3. TRICOR [Concomitant]
  4. LIPITOR [Concomitant]
  5. PROZAC [Concomitant]
  6. NEXIUM [Concomitant]
  7. DYAZIDE [Concomitant]
  8. XANAX [Concomitant]

REACTIONS (9)
  - DEPRESSION [None]
  - DISTURBANCE IN ATTENTION [None]
  - FATIGUE [None]
  - FEELING OF DESPAIR [None]
  - INSOMNIA [None]
  - INTENTIONAL DRUG MISUSE [None]
  - LETHARGY [None]
  - NAUSEA [None]
  - NERVOUSNESS [None]
